FAERS Safety Report 13362961 (Version 4)
Quarter: 2017Q4

REPORT INFORMATION
  Report Type: Report from Study
  Country: AU (occurrence: AU)
  Receive Date: 20170323
  Receipt Date: 20171002
  Transmission Date: 20180320
  Serious: Yes (Hospitalization, Other)
  Sender: FDA-Public Use
  Company Number: AU-REGENERON PHARMACEUTICALS, INC.-2016-23332

PATIENT

DRUGS (1)
  1. EYLEA [Suspect]
     Active Substance: AFLIBERCEPT
     Indication: NEOVASCULAR AGE-RELATED MACULAR DEGENERATION
     Dosage: UNK, 10 WEEKLY
     Route: 031
     Dates: start: 20150401

REACTIONS (8)
  - Skin cancer [Recovering/Resolving]
  - Cataract [Unknown]
  - Malignant melanoma [Recovering/Resolving]
  - Cough [Not Recovered/Not Resolved]
  - Astigmatism [Unknown]
  - Pseudomonas infection [Recovering/Resolving]
  - Visual impairment [Not Recovered/Not Resolved]
  - Influenza [Recovering/Resolving]

NARRATIVE: CASE EVENT DATE: 201607
